FAERS Safety Report 16313167 (Version 3)
Quarter: 2019Q2

REPORT INFORMATION
  Report Type: Spontaneous
  Country: US (occurrence: US)
  Receive Date: 20190515
  Receipt Date: 20190619
  Transmission Date: 20190711
  Serious: Yes (Death)
  Sender: FDA-Public Use
  Company Number: US-ALKERMES INC.-ALK-2019-002537

PATIENT
  Age: 55 Year
  Sex: Male
  Weight: 102.49 kg

DRUGS (2)
  1. VIVITROL [Suspect]
     Active Substance: NALTREXONE
     Dosage: 380 MG, QMO
     Route: 030
     Dates: start: 20180621, end: 20180621
  2. VIVITROL [Suspect]
     Active Substance: NALTREXONE
     Indication: ALCOHOLISM
     Dosage: 380 MG, QMO
     Route: 030
     Dates: start: 20180808, end: 20181211

REACTIONS (6)
  - Insurance issue [Not Recovered/Not Resolved]
  - Anxiety [Not Recovered/Not Resolved]
  - Loss of employment [Not Recovered/Not Resolved]
  - Depressed mood [Not Recovered/Not Resolved]
  - Completed suicide [Fatal]
  - Death of relative [Not Recovered/Not Resolved]

NARRATIVE: CASE EVENT DATE: 201811
